FAERS Safety Report 8968566 (Version 1)
Quarter: 2012Q4

REPORT INFORMATION
  Report Type: Spontaneous
  Country: DE (occurrence: None)
  Receive Date: 20121207
  Receipt Date: 20121207
  Transmission Date: 20130627
  Serious: Yes (Hospitalization)
  Sender: FDA-Public Use
  Company Number: UTC-026056

PATIENT
  Age: 25 Year
  Sex: Female
  Weight: 73 kg

DRUGS (6)
  1. REMODULIN [Suspect]
     Route: 058
     Dates: start: 20121107, end: 201211
  2. REMODULIN [Suspect]
     Dosage: 29.232 ug/kg (0.0203 ug/kg, 1 in 1 min), subcutaneous
     Dates: start: 20121123
  3. BOSENTAN [Concomitant]
  4. SILDENAFIL [Concomitant]
  5. TORSEMIDE (TORASEMIDE) [Concomitant]
  6. MARCUMAR (PHENPROCOUMON) [Concomitant]

REACTIONS (5)
  - Fatigue [None]
  - Dizziness [None]
  - Nausea [None]
  - Headache [None]
  - Brain natriuretic peptide increased [None]
